FAERS Safety Report 4730412-8 (Version None)
Quarter: 2005Q3

REPORT INFORMATION
  Report Type: 
  Country: None (occurrence: None)
  Receive Date: 20050801
  Receipt Date: 20050721
  Transmission Date: 20060218
  Serious: Yes (Hospitalization)
  Sender: FDA-Public Use
  Company Number: US-MERCK-0507USA03425

PATIENT
  Age: 82 Year
  Sex: Female
  Weight: 70 kg

DRUGS (10)
  1. VIOXX [Suspect]
     Indication: RHEUMATOID ARTHRITIS
     Route: 048
     Dates: start: 20010615, end: 20030729
  2. VIOXX [Suspect]
     Route: 048
     Dates: start: 20010509
  3. PROCARDIA [Concomitant]
     Route: 065
  4. PRINIVIL [Concomitant]
     Route: 065
  5. INDERAL [Concomitant]
     Route: 065
  6. METHOTREXATE [Concomitant]
     Route: 065
  7. ACTONEL [Concomitant]
     Route: 065
  8. METOPROLOL [Concomitant]
     Route: 065
  9. PREDNISONE [Concomitant]
     Route: 065
  10. TRAMADOL HYDROCHLORIDE [Concomitant]
     Route: 065

REACTIONS (3)
  - CEREBROVASCULAR ACCIDENT [None]
  - EMOTIONAL DISTRESS [None]
  - HIP FRACTURE [None]
